FAERS Safety Report 9026604 (Version 1)
Quarter: 2013Q1

REPORT INFORMATION
  Report Type: Spontaneous
  Country: US (occurrence: None)
  Receive Date: 20130107
  Receipt Date: 20130122
  Transmission Date: 20140127
  Serious: Yes (Hospitalization)
  Sender: FDA-Public Use
  Company Number: UTC-027444

PATIENT
  Age: 53 Year
  Sex: Female

DRUGS (2)
  1. REMODULIN [Suspect]
     Indication: PULMONARY ARTERIAL HYPERTENSION
     Dosage: (0.00625 UG/KG, 1 IN 1
     Dates: start: 20121126
  2. LETAIRIS (AMBRISENTAN) [Concomitant]

REACTIONS (1)
  - Pneumonia [None]
